FAERS Safety Report 16364810 (Version 1)
Quarter: 2019Q2

REPORT INFORMATION
  Report Type: Spontaneous
  Country: GB (occurrence: GB)
  Receive Date: 20190529
  Receipt Date: 20190529
  Transmission Date: 20190711
  Serious: Yes (Other)
  Sender: FDA-Public Use
  Company Number: GB-CONCORDIA PHARMACEUTICALS INC.-E2B_00019885

PATIENT
  Age: 94 Year
  Sex: Male

DRUGS (6)
  1. FUROSEMIDE. [Concomitant]
     Active Substance: FUROSEMIDE
     Dosage: MORNING AND LUNCHTIME
  2. DOCUSATE [Concomitant]
     Active Substance: DOCUSATE
     Dosage: IN THE MORNING AND AT NIGHT.
  3. CASSIA [Concomitant]
     Dosage: EACH NIGHT
  4. SODIUM HYDROGEN CARBONATE [Concomitant]
     Active Substance: SODIUM BICARBONATE
  5. DIGOXIN. [Suspect]
     Active Substance: DIGOXIN
  6. FINASTERIDE. [Concomitant]
     Active Substance: FINASTERIDE

REACTIONS (1)
  - Bradycardia [Recovered/Resolved]
